FAERS Safety Report 24957599 (Version 2)
Quarter: 2025Q1

REPORT INFORMATION
  Report Type: Report from Study
  Country: US (occurrence: US)
  Receive Date: 20250212
  Receipt Date: 20250221
  Transmission Date: 20250409
  Serious: No
  Sender: ABBVIE
  Company Number: US-ABBVIE-6122220

PATIENT
  Sex: Female
  Weight: 45 kg

DRUGS (3)
  1. DUOPA [Suspect]
     Active Substance: CARBIDOPA\LEVODOPA
     Indication: Parkinson^s disease
     Route: 050
     Dates: start: 20230221, end: 202412
  2. DUOPA [Suspect]
     Active Substance: CARBIDOPA\LEVODOPA
  3. CARBIDOPA AND LEVODOPA [Concomitant]
     Active Substance: CARBIDOPA\LEVODOPA
     Indication: Parkinson^s disease

REACTIONS (3)
  - Speech disorder developmental [Unknown]
  - Fine motor skill dysfunction [Unknown]
  - Fatigue [Not Recovered/Not Resolved]
